FAERS Safety Report 5318088-2 (Version None)
Quarter: 2007Q1

REPORT INFORMATION
  Report Type: 
  Country: None (occurrence: None)
  Receive Date: 20070207
  Receipt Date: 20061122
  Transmission Date: 20070707
  Serious: No
  Sender: FDA-Public Use
  Company Number: SPV1-2006-01790

PATIENT
  Age: 83 Year
  Sex: Male
  Weight: 77.6 kg

DRUGS (5)
  1. FOSRENOL [Suspect]
     Indication: HYPERPHOSPHATAEMIA
     Dosage: 1000 MG, 3X/DAY:TID, ORAL
     Route: 048
     Dates: start: 20061101
  2. FELODIPINE [Concomitant]
  3. NEPHROCAPS                     (FOLIC ACID, VITAMINS NOS) [Concomitant]
  4. PHOSLO [Concomitant]
  5. CLARITIN                    /00413701/ (GLICLAZIDE) [Concomitant]

REACTIONS (1)
  - BLOOD GLUCOSE INCREASED [None]
